FAERS Safety Report 9103629 (Version 2)
Quarter: 2013Q1

REPORT INFORMATION
  Report Type: Spontaneous
  Country: CH (occurrence: CH)
  Receive Date: 20130219
  Receipt Date: 20130307
  Transmission Date: 20140127
  Serious: Yes (Other)
  Sender: FDA-Public Use
  Company Number: CH-ABBOTT-13P-151-1050987-00

PATIENT
  Age: 51 Year
  Sex: Female

DRUGS (6)
  1. HUMIRA [Suspect]
     Indication: RHEUMATOID ARTHRITIS
     Dosage: 3 DOSES IN TOTAL
     Dates: start: 20121207, end: 20130104
  2. METHOTREXATE [Suspect]
     Indication: RHEUMATOID ARTHRITIS
     Dosage: DOSE NOT CHANGED
     Route: 058
  3. FOLIC ACID [Concomitant]
     Indication: PRODUCT USED FOR UNKNOWN INDICATION
     Dates: start: 201204
  4. OMEPRAZOLE [Concomitant]
     Indication: PRODUCT USED FOR UNKNOWN INDICATION
  5. PRIMPERAN [Concomitant]
     Indication: PRODUCT USED FOR UNKNOWN INDICATION
  6. RIMACTAN [Concomitant]
     Indication: TUBERCULOSIS
     Dates: start: 201210, end: 20130124

REACTIONS (15)
  - Horner^s syndrome [Recovering/Resolving]
  - Paraesthesia [Recovering/Resolving]
  - Eyelid oedema [Recovering/Resolving]
  - Abnormal sensation in eye [Recovering/Resolving]
  - Lacrimation increased [Recovered/Resolved]
  - Sensory disturbance [Unknown]
  - Photophobia [Recovered/Resolved]
  - Dry mouth [Unknown]
  - Eyelid ptosis [Recovering/Resolving]
  - Eye disorder [Recovering/Resolving]
  - Headache [Recovered/Resolved]
  - Chest pain [Recovered/Resolved]
  - Cluster headache [Recovering/Resolving]
  - Muscular weakness [Unknown]
  - Paraesthesia oral [Unknown]
